FAERS Safety Report 23108959 (Version 1)
Quarter: 2023Q4

REPORT INFORMATION
  Report Type: Spontaneous
  Country: US (occurrence: None)
  Receive Date: 20231024
  Receipt Date: 20231024
  Transmission Date: 20240109
  Serious: Yes (Hospitalization)
  Sender: FDA-Public Use
  Company Number: None

PATIENT
  Age: 75 Year
  Sex: Male
  Weight: 100 kg

DRUGS (1)
  1. FUROSEMIDE [Suspect]
     Active Substance: FUROSEMIDE
     Dosage: FREQUENCY : DAILY;?
     Route: 048
     Dates: start: 20221216, end: 20230127

REACTIONS (10)
  - Pruritus [None]
  - Rash [None]
  - Urticaria [None]
  - Urticaria [None]
  - Cardiac failure congestive [None]
  - Atrial fibrillation [None]
  - Hypervolaemia [None]
  - Incorrect dose administered [None]
  - Drug ineffective [None]
  - Drug hypersensitivity [None]

NARRATIVE: CASE EVENT DATE: 20230113
